FAERS Safety Report 8471506-3 (Version None)
Quarter: 2012Q2

REPORT INFORMATION
  Report Type: 
  Country: None (occurrence: None)
  Receive Date: 20120627
  Receipt Date: 20120625
  Transmission Date: 20120825
  Serious: Yes (Hospitalization)
  Sender: FDA-Public Use
  Company Number: PHHY2012FR054622

PATIENT
  Sex: Male

DRUGS (5)
  1. RASILEZ [Suspect]
     Indication: HYPERTENSION
     Dosage: 150 MG, QD
     Route: 048
     Dates: end: 20120624
  2. CORDARONE [Concomitant]
  3. NEBIVOLOL HCL [Concomitant]
  4. LASIX [Concomitant]
  5. ALFUZOSIN HCL [Concomitant]

REACTIONS (1)
  - NEUTROPENIA [None]
